FAERS Safety Report 14182297 (Version 2)
Quarter: 2018Q1

REPORT INFORMATION
  Report Type: Report from Study
  Country: US (occurrence: US)
  Receive Date: 20171113
  Receipt Date: 20180130
  Transmission Date: 20180508
  Serious: Yes (Other)
  Sender: FDA-Public Use
  Company Number: PHHO2017US015224

PATIENT
  Age: 49 Year
  Sex: Male
  Weight: 79.37 kg

DRUGS (8)
  1. PLACEBO [Suspect]
     Active Substance: UNSPECIFIED INGREDIENT
     Indication: ANKYLOSING SPONDYLITIS
     Dosage: 150 MG, FOR 4 WEEKS
     Route: 058
     Dates: start: 20140827, end: 20170726
  2. HYDROCHLOROTHIAZIDE. [Concomitant]
     Active Substance: HYDROCHLOROTHIAZIDE
     Indication: RENAL LITHIASIS PROPHYLAXIS
     Dosage: 12.5 MG, QD
     Route: 048
     Dates: start: 20150923
  3. AMBIEN [Concomitant]
     Active Substance: ZOLPIDEM TARTRATE
     Indication: INSOMNIA
     Dosage: UNK
     Route: 065
  4. MULTIVITAMIN [Concomitant]
     Active Substance: VITAMINS
     Indication: SUPPLEMENTATION THERAPY
     Dosage: 1 MG, QD
     Route: 048
     Dates: start: 1989
  5. FISH OIL [Concomitant]
     Active Substance: FISH OIL
     Indication: SUPPLEMENTATION THERAPY
     Dosage: 1 MG, BID
     Route: 048
     Dates: start: 20150115
  6. CARVEDILOL. [Concomitant]
     Active Substance: CARVEDILOL
     Indication: HYPERTENSION
     Dosage: 25 MG, BID
     Route: 048
     Dates: start: 201201
  7. IRON [Concomitant]
     Active Substance: IRON
     Indication: ANAEMIA
     Dosage: 10 MG, QD
     Route: 048
     Dates: start: 201101
  8. TRAMADOL. [Concomitant]
     Active Substance: TRAMADOL
     Indication: ANKYLOSING SPONDYLITIS
     Dosage: 100 MG, TID
     Route: 048
     Dates: start: 2012

REACTIONS (1)
  - Malignant melanoma [Recovered/Resolved]

NARRATIVE: CASE EVENT DATE: 20171003
